FAERS Safety Report 24767993 (Version 1)
Quarter: 2024Q4

REPORT INFORMATION
  Report Type: Spontaneous
  Country: US (occurrence: US)
  Receive Date: 20241223
  Receipt Date: 20241223
  Transmission Date: 20250115
  Serious: Yes (Death)
  Sender: MALLINCKRODT
  Company Number: US-MALLINCKRODT-MNK202407671

PATIENT
  Age: 75 Year
  Sex: Male

DRUGS (4)
  1. NITRIC OXIDE [Suspect]
     Active Substance: NITRIC OXIDE
     Indication: Pulmonary arterial hypertension
     Dosage: UNKNOWN
     Route: 055
  2. SILDENAFIL [Concomitant]
     Active Substance: SILDENAFIL
     Dosage: UNKNOWN
  3. OXYGEN [Concomitant]
     Active Substance: OXYGEN
  4. OXYGEN [Concomitant]
     Active Substance: OXYGEN
     Dosage: INCREASED TO 8-10 LITERS

REACTIONS (3)
  - Death [Fatal]
  - Hypoxia [Unknown]
  - Product use issue [Unknown]
